FAERS Safety Report 5765590-5 (Version None)
Quarter: 2008Q2

REPORT INFORMATION
  Report Type: 
  Country: None (occurrence: None)
  Receive Date: 20080606
  Receipt Date: 20080606
  Transmission Date: 20081010
  Serious: Yes (Hospitalization)
  Sender: FDA-Public Use
  Company Number: None

PATIENT
  Age: 61 Year
  Sex: Male
  Weight: 70.72 kg

DRUGS (1)
  1. CIPROFLOXACIN IN DEXTROSE [Suspect]
     Indication: INFECTION
     Dosage: 400 MG  BID  IV
     Route: 042
     Dates: start: 20080401, end: 20080403

REACTIONS (1)
  - RASH GENERALISED [None]
